FAERS Safety Report 9154611 (Version 1)
Quarter: 2013Q1

REPORT INFORMATION
  Report Type: Spontaneous
  Country: US (occurrence: None)
  Receive Date: 20130305
  Receipt Date: 20130305
  Transmission Date: 20140127
  Serious: Yes (Hospitalization, Other)
  Sender: FDA-Public Use
  Company Number: None

PATIENT
  Age: 39 Year
  Sex: Male

DRUGS (1)
  1. ZELBORAT [Suspect]
     Indication: MALIGNANT MELANOMA
     Dosage: 960 MG BID PO
     Route: 048
     Dates: start: 20120824

REACTIONS (2)
  - Hypoaesthesia [None]
  - Tumour haemorrhage [None]
